FAERS Safety Report 14841444 (Version 1)
Quarter: 2018Q2

REPORT INFORMATION
  Report Type: Spontaneous
  Country: DE (occurrence: DE)
  Receive Date: 20180503
  Receipt Date: 20180503
  Transmission Date: 20180711
  Serious: Yes (Hospitalization, Other)
  Sender: FDA-Public Use
  Company Number: DE-AUROBINDO-AUR-APL-2018-023298

PATIENT
  Age: 40 Year
  Sex: Male

DRUGS (2)
  1. OLANZAPINE TABLET [Suspect]
     Active Substance: OLANZAPINE
     Indication: PRODUCT USED FOR UNKNOWN INDICATION
     Dosage: 20 MILLIGRAM, 1 DAY
     Route: 048
  2. XEPLION [Suspect]
     Active Substance: PALIPERIDONE PALMITATE
     Indication: SCHIZOPHRENIA
     Dosage: 100 MILLIGRAM
     Route: 030
     Dates: end: 201803

REACTIONS (3)
  - Pulmonary embolism [Unknown]
  - Suicide attempt [Recovered/Resolved]
  - Pneumonia [Unknown]
